FAERS Safety Report 6241619-5 (Version None)
Quarter: 2009Q2

REPORT INFORMATION
  Report Type: 
  Country: None (occurrence: None)
  Receive Date: 20090623
  Receipt Date: 20040723
  Transmission Date: 20091009
  Serious: Yes (Hospitalization)
  Sender: FDA-Public Use
  Company Number: TR-ROCHE-443428

PATIENT
  Sex: Male
  Weight: 70 kg

DRUGS (43)
  1. DACLIZUMAB [Suspect]
     Route: 042
     Dates: start: 20031225, end: 20031225
  2. DACLIZUMAB [Suspect]
     Route: 042
     Dates: start: 20040122
  3. DACLIZUMAB [Suspect]
     Route: 042
     Dates: start: 20040205
  4. DACLIZUMAB [Suspect]
     Route: 042
     Dates: start: 20040219
  5. MYCOPHENOLATE MOFETIL [Suspect]
     Route: 048
     Dates: start: 20031225
  6. MYCOPHENOLATE MOFETIL [Suspect]
     Route: 048
     Dates: start: 20040102
  7. MYCOPHENOLATE MOFETIL [Suspect]
     Route: 048
     Dates: start: 20040105
  8. MYCOPHENOLATE MOFETIL [Suspect]
     Route: 048
     Dates: start: 20040115
  9. MYCOPHENOLATE MOFETIL [Suspect]
     Route: 048
     Dates: start: 20040412
  10. MYCOPHENOLATE MOFETIL [Suspect]
     Route: 048
     Dates: start: 20040615
  11. TACROLIMUS [Suspect]
     Route: 048
     Dates: start: 20031225, end: 20031229
  12. TACROLIMUS [Suspect]
     Route: 048
     Dates: start: 20040101
  13. TACROLIMUS [Suspect]
     Route: 048
     Dates: start: 20040109
  14. TACROLIMUS [Suspect]
     Route: 048
     Dates: start: 20040122
  15. TACROLIMUS [Suspect]
     Route: 048
     Dates: start: 20040129
  16. TACROLIMUS [Suspect]
     Route: 048
     Dates: start: 20040219
  17. TACROLIMUS [Suspect]
     Route: 048
     Dates: start: 20040226
  18. TACROLIMUS [Suspect]
     Route: 048
     Dates: start: 20040304
  19. TACROLIMUS [Suspect]
     Route: 048
     Dates: start: 20040316
  20. TACROLIMUS [Suspect]
     Route: 048
     Dates: start: 20040412
  21. TACROLIMUS [Suspect]
     Route: 048
     Dates: start: 20040527
  22. TACROLIMUS [Suspect]
     Route: 048
     Dates: start: 20040616
  23. TACROLIMUS [Suspect]
     Route: 048
     Dates: start: 20040930
  24. PREDNISOLONE [Suspect]
     Route: 042
     Dates: start: 20031225, end: 20031227
  25. PREDNISOLONE [Suspect]
     Route: 042
     Dates: start: 20031228, end: 20031228
  26. PREDNISOLONE [Suspect]
     Route: 042
     Dates: start: 20031229, end: 20031230
  27. PREDNISOLONE [Suspect]
     Route: 048
     Dates: start: 20031231
  28. PREDNISOLONE [Suspect]
     Route: 048
     Dates: start: 20040115
  29. PREDNISOLONE [Suspect]
     Route: 048
     Dates: start: 20040122
  30. PREDNISOLONE [Suspect]
     Route: 048
     Dates: start: 20040226
  31. PREDNISOLONE [Suspect]
     Route: 048
     Dates: start: 20040705
  32. GANCICLOVIR [Concomitant]
     Dosage: DRUG NAME REPORTED AS GANCYCLOVIR
     Route: 048
     Dates: start: 20031228
  33. GANCICLOVIR [Concomitant]
     Route: 048
     Dates: start: 20040106
  34. GANCICLOVIR [Concomitant]
     Route: 048
     Dates: start: 20040323
  35. GANCICLOVIR [Concomitant]
     Route: 048
     Dates: start: 20040325
  36. MYCOSTATIN [Concomitant]
     Route: 048
     Dates: start: 20031226, end: 20040705
  37. SULFAMETHOXAZOLE AND TRIMETHOPRIM [Concomitant]
     Dosage: DRUG NAME REPORTED AS TRIMETOPRIM SULPHAMETAXASOL
     Route: 048
     Dates: start: 20031226, end: 20040705
  38. ACYCLOVIR [Concomitant]
     Route: 048
     Dates: start: 20031226, end: 20031228
  39. ACYCLOVIR [Concomitant]
     Route: 048
     Dates: start: 20040106, end: 20040323
  40. ACYCLOVIR [Concomitant]
     Route: 048
     Dates: start: 20040325, end: 20040705
  41. AMLODIPINE [Concomitant]
     Route: 048
     Dates: start: 20040109
  42. FAMOTIDIN [Concomitant]
     Route: 048
     Dates: start: 20031228
  43. PRAVASTATIN [Concomitant]
     Route: 048
     Dates: start: 20031228

REACTIONS (1)
  - CYTOMEGALOVIRUS VIRAEMIA [None]
